FAERS Safety Report 10060842 (Version 1)
Quarter: 2014Q2

REPORT INFORMATION
  Report Type: Spontaneous
  Country: US (occurrence: US)
  Receive Date: 20140404
  Receipt Date: 20140404
  Transmission Date: 20141212
  Serious: No
  Sender: FDA-Public Use
  Company Number: US-B.I. PHARMACEUTICALS,INC./RIDGEFIELD-2014-BI-13093BP

PATIENT
  Sex: Female

DRUGS (5)
  1. CATAPRES [Suspect]
     Indication: PRODUCT USED FOR UNKNOWN INDICATION
     Route: 065
  2. NORVASC 5MG-1/2 TAB QD [Concomitant]
     Indication: HYPERTENSION
     Dosage: 2.5 MG
     Route: 065
  3. DIAZEPAM 5MG HS [Concomitant]
     Dosage: 5 MG
     Route: 065
  4. TYLENOL [Concomitant]
     Route: 065
  5. PREMARIN CREAM/ 1WK. [Concomitant]
     Route: 065

REACTIONS (1)
  - Irritable bowel syndrome [Unknown]
